FAERS Safety Report 6857954-3 (Version None)
Quarter: 2010Q3

REPORT INFORMATION
  Report Type: 
  Country: None (occurrence: None)
  Receive Date: 20100714
  Receipt Date: 20100629
  Transmission Date: 20110219
  Serious: Yes (Hospitalization)
  Sender: FDA-Public Use
  Company Number: 2010PV000025

PATIENT
  Age: 56 Year
  Sex: Female

DRUGS (7)
  1. DEPOCYT [Suspect]
     Indication: NON-HODGKIN'S LYMPHOMA
     Dosage: 50 MG; X 1; INTH
     Route: 037
     Dates: start: 20100511, end: 20100511
  2. METHOTREXATE [Suspect]
     Indication: NON-HODGKIN'S LYMPHOMA
     Dosage: 2 GM; X 1; IV; 15 MG; QD; INTH
     Route: 042
     Dates: start: 20100510, end: 20100510
  3. METHOTREXATE [Suspect]
     Indication: NON-HODGKIN'S LYMPHOMA
     Dosage: 2 GM; X 1; IV; 15 MG; QD; INTH
     Route: 042
     Dates: start: 20100511, end: 20100511
  4. IFOSFAMIDE [Suspect]
     Indication: NON-HODGKIN'S LYMPHOMA
     Dosage: 3 GM; QD;IV
     Route: 042
     Dates: start: 20100510, end: 20100512
  5. NOVANTRONE [Suspect]
     Indication: NON-HODGKIN'S LYMPHOMA
     Dosage: 20 MG; QD; IV
     Route: 042
     Dates: start: 20100510, end: 20100511
  6. ETOPOSIDE [Suspect]
     Indication: NON-HODGKIN'S LYMPHOMA
     Dosage: 300 MG; QD; IV
     Route: 042
     Dates: start: 20100510, end: 20100512
  7. RITUXAN [Suspect]
     Indication: NON-HODGKIN'S LYMPHOMA
     Dosage: 750 MG; QD; IV
     Route: 042
     Dates: start: 20100510, end: 20100510

REACTIONS (7)
  - BLOOD CREATININE INCREASED [None]
  - BRADYCARDIA [None]
  - DYSSTASIA [None]
  - ENCEPHALOPATHY [None]
  - MENTAL IMPAIRMENT [None]
  - TETANY [None]
  - URINARY INCONTINENCE [None]
